FAERS Safety Report 14298546 (Version 3)
Quarter: 2018Q1

REPORT INFORMATION
  Report Type: Report from Study
  Country: None (occurrence: DE)
  Receive Date: 20171218
  Receipt Date: 20180216
  Transmission Date: 20180509
  Serious: Yes (Hospitalization)
  Sender: FDA-Public Use
  Company Number: DE-ABBVIE-17P-062-2185611-00

PATIENT
  Age: 13 Year
  Sex: Male
  Weight: 38 kg

DRUGS (22)
  1. VEDOLIZUMAB [Concomitant]
     Active Substance: VEDOLIZUMAB
     Indication: CROHN^S DISEASE
     Dosage: EVERY 4-6 WEEKS
     Route: 042
     Dates: start: 20160616
  2. HUMIRA [Suspect]
     Active Substance: ADALIMUMAB
     Route: 058
     Dates: start: 20160310, end: 20160617
  3. OMEPRAZOL [Concomitant]
     Active Substance: OMEPRAZOLE
     Route: 048
     Dates: start: 2016, end: 201704
  4. VITAMIN D [Concomitant]
     Active Substance: CHOLECALCIFEROL
     Indication: PROPHYLAXIS
     Dosage: I.E
     Route: 048
     Dates: start: 2016
  5. OMEPRAZOL [Concomitant]
     Active Substance: OMEPRAZOLE
     Indication: CROHN^S DISEASE
     Route: 048
     Dates: start: 20160320, end: 20160629
  6. ONDANSETRON [Concomitant]
     Active Substance: ONDANSETRON
     Indication: CROHN^S DISEASE
     Route: 048
     Dates: start: 2017
  7. PREDNISOLON [Concomitant]
     Active Substance: PREDNISOLONE
     Dosage: 2,5 MG
     Route: 048
     Dates: start: 20170402, end: 20170406
  8. MESALAZIN-SALOFALK [Concomitant]
     Indication: CROHN^S DISEASE
     Route: 048
     Dates: start: 20120416, end: 20160510
  9. ACETYLSALICYLS?URE [Concomitant]
     Indication: CROHN^S DISEASE
     Route: 048
     Dates: start: 20170628, end: 20171204
  10. SOLU-DECORTIN [Concomitant]
     Active Substance: PREDNISOLONE SODIUM SUCCINATE
     Indication: CROHN^S DISEASE
     Route: 048
     Dates: start: 20160630, end: 201612
  11. FOLIC ACID. [Concomitant]
     Active Substance: FOLIC ACID
     Indication: CROHN^S DISEASE
     Route: 048
     Dates: start: 20160630
  12. MUTAFLOR [Concomitant]
     Active Substance: ESCHERICHIA COLI
     Indication: CROHN^S DISEASE
     Route: 048
     Dates: start: 20160510, end: 20161101
  13. HUMIRA [Suspect]
     Active Substance: ADALIMUMAB
     Indication: CROHN^S DISEASE
     Route: 058
     Dates: start: 20160310, end: 20160510
  14. METHOTREXATE. [Suspect]
     Active Substance: METHOTREXATE
     Indication: CROHN^S DISEASE
     Route: 048
     Dates: start: 20160312, end: 20160316
  15. METHOTREXATE. [Suspect]
     Active Substance: METHOTREXATE
     Dosage: EVERY WEEK FRIDAY
     Route: 048
     Dates: start: 20160405
  16. MESALAZIN-SALOFALK [Concomitant]
     Route: 048
     Dates: start: 20160511, end: 20160629
  17. MESALAZIN-SALOFALK [Concomitant]
     Route: 048
     Dates: start: 20160630
  18. HUMIRA [Suspect]
     Active Substance: ADALIMUMAB
     Dosage: TUESDAY AND SATURDAY
     Route: 058
     Dates: start: 20160514, end: 20160617
  19. SANDIMMUN-OPTORAL [Concomitant]
     Active Substance: CYCLOSPORINE
     Indication: CROHN^S DISEASE
     Route: 048
     Dates: start: 20160216, end: 20160412
  20. ACETYLSALICYLS?URE [Concomitant]
     Indication: CROHN^S DISEASE
     Route: 048
     Dates: start: 20170628
  21. TRIMETHOPRIM. [Concomitant]
     Active Substance: TRIMETHOPRIM
     Indication: CROHN^S DISEASE
     Dosage: MORNING AND EVENING
     Route: 048
     Dates: start: 20160316, end: 20160408
  22. PREDNISOLON [Concomitant]
     Active Substance: PREDNISOLONE
     Indication: CROHN^S DISEASE
     Route: 048
     Dates: start: 201703, end: 20170402

REACTIONS (2)
  - Fall [Not Recovered/Not Resolved]
  - Thoracic vertebral fracture [Not Recovered/Not Resolved]

NARRATIVE: CASE EVENT DATE: 20171204
